FAERS Safety Report 18097558 (Version 2)
Quarter: 2021Q1

REPORT INFORMATION
  Report Type: Spontaneous
  Country: US (occurrence: US)
  Receive Date: 20200731
  Receipt Date: 20210120
  Transmission Date: 20210419
  Serious: Yes (Other)
  Sender: FDA-Public Use
  Company Number: US-BAYER-2020-151399

PATIENT
  Age: 39 Year
  Sex: Female

DRUGS (3)
  1. NAPROXEN SODIUM ({= 220 MG) [Suspect]
     Active Substance: NAPROXEN SODIUM
  2. ASPIRIN (PAIN AND FEVER) [Suspect]
     Active Substance: ASPIRIN
  3. IBUPROFEN. [Suspect]
     Active Substance: IBUPROFEN

REACTIONS (6)
  - Aspirin-exacerbated respiratory disease [None]
  - Swelling face [None]
  - Nasal congestion [None]
  - Dyspnoea [None]
  - Drug hypersensitivity [None]
  - Menorrhagia [None]
